FAERS Safety Report 13545830 (Version 1)
Quarter: 2017Q2

REPORT INFORMATION
  Report Type: Spontaneous
  Country: US (occurrence: US)
  Receive Date: 20170515
  Receipt Date: 20170515
  Transmission Date: 20170830
  Serious: Yes (Death)
  Sender: FDA-Public Use
  Company Number: US-ORPHAN EUROPE-2020747

PATIENT
  Age: 11 Year
  Sex: Female
  Weight: 81.4 kg

DRUGS (18)
  1. MERREM [Concomitant]
     Active Substance: MEROPENEM
  2. AMMONUL [Concomitant]
     Active Substance: SODIUM BENZOATE\SODIUM PHENYLACETATE
  3. AMPHOTERICIN B. [Concomitant]
     Active Substance: AMPHOTERICIN B
  4. BENADRYL [Concomitant]
     Active Substance: DIPHENHYDRAMINE HYDROCHLORIDE
  5. MARINOL [Concomitant]
     Active Substance: DRONABINOL
  6. CEFEPIME [Concomitant]
     Active Substance: CEFEPIME HYDROCHLORIDE
  7. NEUPOGEN [Concomitant]
     Active Substance: FILGRASTIM
  8. CALCIUM CHLORIDE. [Concomitant]
     Active Substance: CALCIUM CHLORIDE
  9. SCOPOLAMINE [Concomitant]
     Active Substance: SCOPOLAMINE
  10. VANCOMYCIN [Concomitant]
     Active Substance: VANCOMYCIN
  11. HYDROCORTISONE. [Concomitant]
     Active Substance: HYDROCORTISONE
  12. ARGININE [Concomitant]
     Active Substance: ARGININE
  13. HEPARIN [Concomitant]
     Active Substance: HEPARIN SODIUM
  14. MANNITOL. [Concomitant]
     Active Substance: MANNITOL
  15. VITAMIN K [Concomitant]
     Active Substance: PHYTONADIONE
  16. CARBAGLU [Suspect]
     Active Substance: CARGLUMIC ACID
     Indication: HYPERAMMONAEMIA
     Route: 050
     Dates: start: 20160419, end: 20160420
  17. PEPCID [Concomitant]
     Active Substance: FAMOTIDINE
  18. METRONIDAZOLE. [Concomitant]
     Active Substance: METRONIDAZOLE

REACTIONS (3)
  - Off label use [Recovered/Resolved]
  - Death [Fatal]
  - Device occlusion [Recovered/Resolved]

NARRATIVE: CASE EVENT DATE: 20160419
